FAERS Safety Report 17204706 (Version 2)
Quarter: 2020Q4

REPORT INFORMATION
  Report Type: Spontaneous
  Country: US (occurrence: US)
  Receive Date: 20191226
  Receipt Date: 20201229
  Transmission Date: 20210113
  Serious: Yes (Other)
  Sender: FDA-Public Use
  Company Number: US-ASTRAZENECA-2019SF86687

PATIENT
  Age: 55 Year
  Sex: Female
  Weight: 112.5 kg

DRUGS (37)
  1. LEVOFLOXACIN. [Concomitant]
     Active Substance: LEVOFLOXACIN
  2. ZITHROMAX [Concomitant]
     Active Substance: AZITHROMYCIN DIHYDRATE
  3. FLUCONAZOLE. [Concomitant]
     Active Substance: FLUCONAZOLE
  4. LISINOPRIL. [Concomitant]
     Active Substance: LISINOPRIL
  5. BENICAR [Concomitant]
     Active Substance: OLMESARTAN MEDOXOMIL
  6. ALTACE [Concomitant]
     Active Substance: RAMIPRIL
  7. TRICOR [Concomitant]
     Active Substance: FENOFIBRATE
  8. HYDROCHLOROTHIAZIDE. [Concomitant]
     Active Substance: HYDROCHLOROTHIAZIDE
  9. TOPAMAX [Concomitant]
     Active Substance: TOPIRAMATE
  10. DICYCLOMINE [Concomitant]
     Active Substance: DICYCLOMINE HYDROCHLORIDE
  11. PROAIR HFA [Concomitant]
     Active Substance: ALBUTEROL SULFATE
  12. LORAZEPAM. [Concomitant]
     Active Substance: LORAZEPAM
  13. SERTRALINE [Concomitant]
     Active Substance: SERTRALINE HYDROCHLORIDE
  14. PERCOCET [Concomitant]
     Active Substance: ACETAMINOPHEN\OXYCODONE HYDROCHLORIDE
  15. NEXIUM [Suspect]
     Active Substance: ESOMEPRAZOLE MAGNESIUM
     Indication: GASTROOESOPHAGEAL REFLUX DISEASE
     Route: 048
     Dates: start: 2003, end: 2018
  16. NEXIUM [Suspect]
     Active Substance: ESOMEPRAZOLE MAGNESIUM
     Indication: GASTROOESOPHAGEAL REFLUX DISEASE
     Route: 048
     Dates: start: 2003, end: 2015
  17. PANTOPRAZOLE [Suspect]
     Active Substance: PANTOPRAZOLE
     Indication: GASTROOESOPHAGEAL REFLUX DISEASE
     Dosage: GENERIC
     Route: 065
     Dates: start: 2016
  18. METOPROLOL TARTRATE. [Concomitant]
     Active Substance: METOPROLOL TARTRATE
  19. NORCO [Concomitant]
     Active Substance: ACETAMINOPHEN\HYDROCODONE BITARTRATE
  20. SYNTHROID [Concomitant]
     Active Substance: LEVOTHYROXINE SODIUM
  21. NOREL [Concomitant]
  22. FUROSEMIDE. [Concomitant]
     Active Substance: FUROSEMIDE
  23. TRIAMCINOLONE ACETONIDE. [Concomitant]
     Active Substance: TRIAMCINOLONE ACETONIDE
  24. CEPHALEXIN. [Concomitant]
     Active Substance: CEPHALEXIN
  25. SIMVASTATIN. [Concomitant]
     Active Substance: SIMVASTATIN
  26. CLONIDINE. [Concomitant]
     Active Substance: CLONIDINE
  27. LINZESS [Concomitant]
     Active Substance: LINACLOTIDE
  28. LYRICA [Concomitant]
     Active Substance: PREGABALIN
  29. PLAVIX [Concomitant]
     Active Substance: CLOPIDOGREL BISULFATE
  30. OFLOXACIN. [Concomitant]
     Active Substance: OFLOXACIN
  31. DIOVAN [Concomitant]
     Active Substance: VALSARTAN
  32. INDOMETHACIN. [Concomitant]
     Active Substance: INDOMETHACIN
  33. ACYCLOVIR. [Concomitant]
     Active Substance: ACYCLOVIR
  34. PREDNISOLONE. [Concomitant]
     Active Substance: PREDNISOLONE
  35. ZOLOFT [Concomitant]
     Active Substance: SERTRALINE HYDROCHLORIDE
  36. LORAZEPAM. [Concomitant]
     Active Substance: LORAZEPAM
  37. VITAMIN D3 [Concomitant]
     Active Substance: CHOLECALCIFEROL

REACTIONS (3)
  - Chronic kidney disease [Unknown]
  - Renal failure [Not Recovered/Not Resolved]
  - Gastrooesophageal reflux disease [Not Recovered/Not Resolved]

NARRATIVE: CASE EVENT DATE: 2016
